FAERS Safety Report 22239943 (Version 1)
Quarter: 2023Q2

REPORT INFORMATION
  Report Type: Spontaneous
  Country: US (occurrence: US)
  Receive Date: 20230421
  Receipt Date: 20230421
  Transmission Date: 20230721
  Serious: Yes (Death, Other)
  Sender: FDA-Public Use
  Company Number: US-BRISTOL-MYERS SQUIBB COMPANY-2023-057025

PATIENT
  Age: 75 Year

DRUGS (1)
  1. REVLIMID [Suspect]
     Active Substance: LENALIDOMIDE
     Indication: Diffuse large B-cell lymphoma
     Dosage: DOSE : UNKNOWN;     FREQ : ^1 DAILY X 21 DAYS, 7 DAYS OFF^
     Route: 048
     Dates: start: 20230109

REACTIONS (2)
  - Death [Fatal]
  - Off label use [Unknown]
